FAERS Safety Report 24531732 (Version 2)
Quarter: 2024Q4

REPORT INFORMATION
  Report Type: Report from Study
  Country: ES (occurrence: ES)
  Receive Date: 20241022
  Receipt Date: 20241031
  Transmission Date: 20250115
  Serious: Yes (Other)
  Sender: ABBVIE
  Company Number: ES-ABBVIE-5967768

PATIENT
  Age: 67 Year
  Sex: Male
  Weight: 80 kg

DRUGS (5)
  1. ABBV-951 [Suspect]
     Active Substance: FOSCARBIDOPA\FOSLEVODOPA
     Indication: Parkinson^s disease
     Dosage: 1.2 ML, CONTINUOUS RATE PUMP SETTING BASE 0.62 ML/H, CONTINUOUS RATE PUMP SETTING HIGH 0.72 ML/H,...
     Route: 058
     Dates: start: 20240326, end: 20241009
  2. ABBV-951 [Suspect]
     Active Substance: FOSCARBIDOPA\FOSLEVODOPA
     Dosage: ABDOMINAL REGION?CONTINUOUS RATE PUMP SETTING BASE-0.60 ML/H?CONTINUOUS RATE PUMP SETTING HIGH-0....
     Route: 058
     Dates: start: 20241009
  3. CYANOCOBALAMIN\FOLIC ACID\PYRIDOXINE HYDROCHLORIDE [Concomitant]
     Active Substance: CYANOCOBALAMIN\FOLIC ACID\PYRIDOXINE HYDROCHLORIDE
     Indication: Folate deficiency
     Route: 048
     Dates: start: 20240209
  4. CARBIMAZOLE [Concomitant]
     Active Substance: CARBIMAZOLE
     Indication: Hyperthyroidism
     Route: 048
     Dates: start: 20221025
  5. OPTOVITE [Concomitant]
     Indication: Vitamin B12 deficiency
     Dosage: 1 AMPULE
     Route: 030
     Dates: start: 20190927

REACTIONS (1)
  - Papillary thyroid cancer [Not Recovered/Not Resolved]

NARRATIVE: CASE EVENT DATE: 20240501
